FAERS Safety Report 19651777 (Version 1)
Quarter: 2021Q3

REPORT INFORMATION
  Report Type: Spontaneous
  Country: US (occurrence: US)
  Receive Date: 20210802
  Receipt Date: 20210802
  Transmission Date: 20211014
  Serious: No
  Sender: FDA-Public Use
  Company Number: None

PATIENT
  Age: 80 Year
  Sex: Male

DRUGS (13)
  1. FUROSEMIDE. [Concomitant]
     Active Substance: FUROSEMIDE
  2. SMZ/TMP DS [Concomitant]
     Active Substance: SULFAMETHOXAZOLE\TRIMETHOPRIM
  3. VERAPAMIL [Concomitant]
     Active Substance: VERAPAMIL HYDROCHLORIDE
  4. HYDROCHLOROT [Concomitant]
     Active Substance: HYDROCHLOROTHIAZIDE
  5. SIMVASTATIN. [Concomitant]
     Active Substance: SIMVASTATIN
  6. ESBRIET [Suspect]
     Active Substance: PIRFENIDONE
     Indication: IDIOPATHIC PULMONARY FIBROSIS
     Route: 048
  7. DULOXETINE. [Concomitant]
     Active Substance: DULOXETINE
  8. LOSARTAN POT [Concomitant]
     Active Substance: LOSARTAN POTASSIUM
  9. PREDNISONE. [Concomitant]
     Active Substance: PREDNISONE
  10. METFORMIN [Concomitant]
     Active Substance: METFORMIN HYDROCHLORIDE
  11. ESCITALOPRAM [Concomitant]
     Active Substance: ESCITALOPRAM OXALATE
  12. LEVEMIR [Concomitant]
     Active Substance: INSULIN DETEMIR
  13. INSULIN ASPA FLEXPEN [Concomitant]

REACTIONS (1)
  - Pulmonary thrombosis [None]

NARRATIVE: CASE EVENT DATE: 20210802
